FAERS Safety Report 9544304 (Version 2)
Quarter: 2013Q4

REPORT INFORMATION
  Report Type: Spontaneous
  Country: CA (occurrence: CA)
  Receive Date: 20130923
  Receipt Date: 20131031
  Transmission Date: 20140711
  Serious: Yes (Other)
  Sender: FDA-Public Use
  Company Number: CA-PFIZER INC-2013272236

PATIENT
  Age: 40 Year
  Sex: Female

DRUGS (5)
  1. PRISTIQ [Suspect]
     Indication: MAJOR DEPRESSION
     Dosage: 50 MG, UNK
     Route: 048
  2. PRISTIQ [Suspect]
     Dosage: 100 MG, UNK
     Route: 048
  3. PRISTIQ [Suspect]
     Dosage: 150 MG, 1X/DAY
     Route: 048
  4. PRISTIQ [Suspect]
     Dosage: 100 MG, UNK
     Route: 048
  5. REMERON [Concomitant]
     Indication: COLITIS
     Dosage: 37.5 MG (1/4 OF 15 MG), 1X/DAY (AT BEDTIME)

REACTIONS (1)
  - Colitis [Recovering/Resolving]
